FAERS Safety Report 21966300 (Version 1)
Quarter: 2023Q1

REPORT INFORMATION
  Report Type: Spontaneous
  Country: GB (occurrence: GB)
  Receive Date: 20230208
  Receipt Date: 20230208
  Transmission Date: 20230418
  Serious: Yes (Other)
  Sender: FDA-Public Use
  Company Number: GB-AMGEN-GBRSP2023017437

PATIENT
  Sex: Male

DRUGS (2)
  1. ADALIMUMAB [Suspect]
     Active Substance: ADALIMUMAB
     Indication: Arthritis enteropathic
     Dosage: 40 MILLIGRAM, Q4WK
     Route: 058
     Dates: end: 2022
  2. ADALIMUMAB [Suspect]
     Active Substance: ADALIMUMAB
     Dosage: 40 MILLIGRAM, Q4WK
     Route: 058
     Dates: start: 202301

REACTIONS (4)
  - Chemotherapy [Recovered/Resolved]
  - Radiotherapy [Recovered/Resolved]
  - Arthritis enteropathic [Recovered/Resolved]
  - Off label use [Unknown]

NARRATIVE: CASE EVENT DATE: 20220101
